FAERS Safety Report 6289186-4 (Version None)
Quarter: 2009Q3

REPORT INFORMATION
  Report Type: 
  Country: None (occurrence: None)
  Receive Date: 20090728
  Receipt Date: 20090717
  Transmission Date: 20100115
  Serious: Yes (Hospitalization, Other)
  Sender: FDA-Public Use
  Company Number: 2009AP000778

PATIENT
  Age: 67 Year
  Sex: Female

DRUGS (3)
  1. LEFLUNOMIDE [Suspect]
     Indication: RHEUMATOID ARTHRITIS
     Dosage: 20 MG, QD, PO
     Route: 048
     Dates: start: 20080101, end: 20090101
  2. METHOTREXATE [Concomitant]
  3. NITROGLYCERIN COMP. [Concomitant]

REACTIONS (3)
  - CARDIAC DISORDER [None]
  - INTERSTITIAL LUNG DISEASE [None]
  - WEIGHT DECREASED [None]
